FAERS Safety Report 20773331 (Version 1)
Quarter: 2022Q2

REPORT INFORMATION
  Report Type: Report from Study
  Country: US (occurrence: US)
  Receive Date: 20220502
  Receipt Date: 20220502
  Transmission Date: 20220721
  Serious: Yes (Other)
  Sender: FDA-Public Use
  Company Number: US-BAYER-2022A059554

PATIENT
  Age: 77 Year
  Sex: Female

DRUGS (7)
  1. ASPIRIN [Suspect]
     Active Substance: ASPIRIN
     Dosage: UNK
  2. RIBOCICLIB [Suspect]
     Active Substance: RIBOCICLIB
  3. LISINOPRIL [Suspect]
     Active Substance: LISINOPRIL
  4. PROCHLORPERAZINE [Suspect]
     Active Substance: PROCHLORPERAZINE
  5. ATORVASTATIN [Suspect]
     Active Substance: ATORVASTATIN
  6. EXEMESTANE [Suspect]
     Active Substance: EXEMESTANE
  7. EVEROLIMUS [Suspect]
     Active Substance: EVEROLIMUS

REACTIONS (1)
  - Acute kidney injury [None]
